FAERS Safety Report 5933090-5 (Version None)
Quarter: 2008Q4

REPORT INFORMATION
  Report Type: 
  Country: None (occurrence: None)
  Receive Date: 20081028
  Receipt Date: 20081017
  Transmission Date: 20090506
  Serious: Yes (Hospitalization, Other)
  Sender: FDA-Public Use
  Company Number: SE-JNJFOC-20081004986

PATIENT
  Age: 57 Year
  Sex: Male

DRUGS (9)
  1. REMICADE [Suspect]
     Route: 042
  2. REMICADE [Suspect]
     Route: 042
  3. REMICADE [Suspect]
     Indication: DRUG USE FOR UNKNOWN INDICATION
     Dosage: (DOSE STRENGTH 100 MG)   DAILY DOSE = 300 MG
     Route: 042
  4. METHOTREXATE [Concomitant]
     Route: 048
  5. KALCIPOS [Concomitant]
     Dosage: 1 TABLET X 2 DAILY
     Route: 048
  6. FOLACIN [Concomitant]
     Dosage: 5 MG DURING 6 DAYS/WEEK
     Route: 048
  7. FENURIL [Concomitant]
     Indication: SKIN INFECTION
     Route: 061
  8. ORUDIS [Concomitant]
  9. PROPYLESS [Concomitant]

REACTIONS (1)
  - PROSTATE CANCER [None]
